FAERS Safety Report 6091173-6 (Version None)
Quarter: 2009Q1

REPORT INFORMATION
  Report Type: 
  Country: None (occurrence: None)
  Receive Date: 20090225
  Receipt Date: 20090214
  Transmission Date: 20090719
  Serious: Yes (Other)
  Sender: FDA-Public Use
  Company Number: CA-JNJFOC-20090204060

PATIENT
  Age: 53 Year
  Sex: Female
  Weight: 81.65 kg

DRUGS (8)
  1. REMICADE [Suspect]
     Route: 042
  2. REMICADE [Suspect]
     Route: 042
  3. REMICADE [Suspect]
     Indication: RHEUMATOID ARTHRITIS
     Route: 042
  4. MICARDIS HCT [Concomitant]
     Indication: HYPERTENSION
     Route: 048
  5. PROMETRIUM [Concomitant]
     Indication: MENOPAUSAL SYMPTOMS
     Route: 048
  6. ESTRACE [Concomitant]
     Indication: MENOPAUSAL SYMPTOMS
     Route: 048
  7. CYCLOBENZAPRINE [Concomitant]
     Indication: RHEUMATOID ARTHRITIS
     Route: 048
  8. METHOTREXATE [Concomitant]
     Indication: RHEUMATOID ARTHRITIS
     Route: 058

REACTIONS (1)
  - VAGINAL HAEMORRHAGE [None]
